FAERS Safety Report 4942679-1 (Version None)
Quarter: 2006Q1

REPORT INFORMATION
  Report Type: 
  Country: None (occurrence: None)
  Receive Date: 20060222
  Receipt Date: 20060131
  Transmission Date: 20060701
  Serious: Yes (Hospitalization)
  Sender: FDA-Public Use
  Company Number: 200511008BVD

PATIENT
  Age: 77 Year
  Sex: Female
  Weight: 70 kg

DRUGS (18)
  1. GAMUNEX [Suspect]
     Indication: IDIOPATHIC THROMBOCYTOPENIC PURPURA
     Dosage: SEE IMAGE
     Route: 042
     Dates: start: 20050509
  2. GAMUNEX [Suspect]
     Indication: IDIOPATHIC THROMBOCYTOPENIC PURPURA
     Dosage: SEE IMAGE
     Route: 042
     Dates: start: 20050510
  3. GAMUNEX [Suspect]
     Dosage: 30 G, QD, INTRAVENOUS; SEE IMAGE
     Route: 042
     Dates: start: 20050511
  4. GAMUNEX [Suspect]
     Dosage: 30 G, QD, INTRAVENOUS; SEE IMAGE
     Route: 042
     Dates: start: 20050512
  5. GAMUNEX [Suspect]
     Dosage: 30 G, QD, INTRAVENOUS; SEE IMAGE
     Route: 042
     Dates: start: 20050513
  6. GAMUNEX [Suspect]
     Dosage: 10 G, QD, INTRAVENOUS; SEE IMAGE
     Route: 042
     Dates: start: 20050606
  7. GAMUNEX [Suspect]
     Dosage: 10 G, QD, INTRAVENOUS; SEE IMAGE
     Route: 042
     Dates: start: 20050607
  8. GAMUNEX [Suspect]
     Dosage: 10 G, QD, INTRAVENOUS; SEE IMAGE
     Route: 042
     Dates: start: 20050608
  9. GAMUNEX [Suspect]
     Dosage: 10 G, QD, INTRAVENOUS; SEE IMAGE
     Route: 042
     Dates: start: 20050609
  10. GAMUNEX [Suspect]
     Dosage: 10 G, QD, INTRAVENOUS; SEE IMAGE
     Route: 042
     Dates: start: 20050610
  11. GAMUNEX [Suspect]
     Dosage: 20 MG, TOTAL DAILY, INTRAVENOUS
     Route: 042
     Dates: start: 20050606
  12. HYDROCHLOROTHIAZIDE [Concomitant]
  13. LISINOPRIL [Concomitant]
  14. AMLODIPINE [Concomitant]
  15. DECORTIN H [Concomitant]
  16. IMUREK [Concomitant]
  17. ACTRAPHANE [Concomitant]
  18. GAMMAREX [Concomitant]

REACTIONS (6)
  - HAEMATEMESIS [None]
  - LEFT VENTRICULAR FAILURE [None]
  - PNEUMONIA [None]
  - RESPIRATORY ARREST [None]
  - SEPSIS [None]
  - SOMNOLENCE [None]
